FAERS Safety Report 14432751 (Version 2)
Quarter: 2018Q1

REPORT INFORMATION
  Report Type: Spontaneous
  Country: AU (occurrence: AU)
  Receive Date: 20180124
  Receipt Date: 20180223
  Transmission Date: 20180509
  Serious: Yes (Other)
  Sender: FDA-Public Use
  Company Number: AU-PFIZER INC-2018003685

PATIENT
  Sex: Female

DRUGS (1)
  1. XALATAN [Suspect]
     Active Substance: LATANOPROST
     Indication: GLAUCOMA
     Dosage: 1 DF, 1X/DAY AT NIGHT
     Route: 047

REACTIONS (1)
  - Dermatitis contact [Recovered/Resolved]

NARRATIVE: CASE EVENT DATE: 2017
